FAERS Safety Report 25267100 (Version 1)
Quarter: 2025Q2

REPORT INFORMATION
  Report Type: Spontaneous
  Country: US (occurrence: US)
  Receive Date: 20250505
  Receipt Date: 20250505
  Transmission Date: 20250716
  Serious: Yes (Other)
  Sender: Kenvue
  Company Number: US-KENVUE-20250500109

PATIENT
  Sex: Male

DRUGS (1)
  1. ZYRTEC [Suspect]
     Active Substance: CETIRIZINE HYDROCHLORIDE
     Indication: Euphoric mood
     Route: 045
     Dates: start: 202504

REACTIONS (10)
  - Drug abuse [Unknown]
  - Hallucination [Unknown]
  - Ingrowing nail [Unknown]
  - Euphoric mood [Unknown]
  - Paranoia [Unknown]
  - Tongue dry [Unknown]
  - Heart rate increased [Unknown]
  - Adverse event [Unknown]
  - Pruritus [Unknown]
  - Insomnia [Unknown]

NARRATIVE: CASE EVENT DATE: 20250401
